FAERS Safety Report 22952332 (Version 2)
Quarter: 2023Q4

REPORT INFORMATION
  Report Type: Report from Study
  Country: CO (occurrence: CO)
  Receive Date: 20230918
  Receipt Date: 20231012
  Transmission Date: 20240109
  Serious: Yes (Hospitalization, Other)
  Sender: FDA-Public Use
  Company Number: CO-UCBSA-2023045485

PATIENT
  Age: 9 Year
  Sex: Female
  Weight: 42 kg

DRUGS (3)
  1. LACOSAMIDE [Suspect]
     Active Substance: LACOSAMIDE
     Indication: Epilepsy
     Dosage: 20 MILLILITER, 2X/DAY (BID)
     Route: 048
     Dates: start: 20220727
  2. CLOBAZAM [Concomitant]
     Active Substance: CLOBAZAM
     Indication: Epilepsy
     Dosage: 05 MILLIGRAM, 3X/DAY (TID)
     Route: 048
  3. VALPROIC ACID [Concomitant]
     Active Substance: VALPROIC ACID
     Indication: Epilepsy
     Dosage: 6 MILLILITER, 3X/DAY (TID)
     Route: 048

REACTIONS (1)
  - Generalised tonic-clonic seizure [Unknown]

NARRATIVE: CASE EVENT DATE: 20230911
